FAERS Safety Report 6137756-6 (Version None)
Quarter: 2009Q1

REPORT INFORMATION
  Report Type: 
  Country: None (occurrence: None)
  Receive Date: 20090327
  Receipt Date: 20090312
  Transmission Date: 20090719
  Serious: No
  Sender: FDA-Public Use
  Company Number: 2009001910

PATIENT
  Age: 42 Year
  Sex: Female

DRUGS (1)
  1. FENTORA [Suspect]
     Indication: PAIN
     Dosage: BU
     Route: 002

REACTIONS (2)
  - DRUG PRESCRIBING ERROR [None]
  - ORAL PAIN [None]
